FAERS Safety Report 4681257-9 (Version None)
Quarter: 2005Q2

REPORT INFORMATION
  Report Type: 
  Country: None (occurrence: None)
  Receive Date: 20050603
  Receipt Date: 20050303
  Transmission Date: 20051028
  Serious: Yes (Other)
  Sender: FDA-Public Use
  Company Number: SE-ROCHE-399149

PATIENT
  Age: 65 Year
  Sex: Male

DRUGS (3)
  1. BONDRONAT [Suspect]
     Dosage: STRENGTH WAS REPORTED AS 6MG/6ML CONC. FOR IN.
     Route: 042
     Dates: start: 20041125, end: 20041223
  2. ZOMETA [Concomitant]
     Dosage: ON AN UNKNOWN DATE DISCONTINUED DUE TO EVENT AND THEN RESTARTED
     Route: 042
     Dates: start: 20040610
  3. LASIX [Concomitant]
     Indication: HYPERTENSION
     Dosage: 30MG DEPOT HARD CAPSULES WHEN REQUIRED. HAD TAKEN ONE DOSE DURING THE PERIOD OF THE EVENT.
     Dates: start: 20030615

REACTIONS (2)
  - LYMPHOEDEMA [None]
  - OEDEMA PERIPHERAL [None]
